FAERS Safety Report 21752193 (Version 2)
Quarter: 2023Q1

REPORT INFORMATION
  Report Type: Report from Study
  Country: US (occurrence: US)
  Receive Date: 20221220
  Receipt Date: 20230314
  Transmission Date: 20230418
  Serious: No
  Sender: FDA-Public Use
  Company Number: US-ABBVIE-4198530

PATIENT
  Age: 49 Year
  Sex: Female

DRUGS (7)
  1. SKYRIZI [Suspect]
     Active Substance: RISANKIZUMAB-RZAA
     Indication: Psoriasis
     Dosage: FORM STRENGTH: 150 MG
     Route: 058
     Dates: start: 20221013
  2. SKYRIZI [Suspect]
     Active Substance: RISANKIZUMAB-RZAA
     Indication: Psoriatic arthropathy
  3. CLOBETASOL [Concomitant]
     Active Substance: CLOBETASOL
     Indication: Product used for unknown indication
  4. COVID-19 vaccine [Concomitant]
     Indication: COVID-19 immunisation
     Dosage: 1 IN ONCE
     Route: 030
  5. COVID-19 vaccine [Concomitant]
     Indication: COVID-19 immunisation
     Dosage: BOOSTER FIRST DOSE?1 IN ONCE
     Route: 030
     Dates: start: 20221105, end: 20221105
  6. COVID-19 vaccine [Concomitant]
     Indication: COVID-19 immunisation
     Dosage: BOOSTER DOSE SECOND DOSE?1 IN ONCE
     Route: 030
     Dates: start: 20221118, end: 20221118
  7. TALTZ [Concomitant]
     Active Substance: IXEKIZUMAB
     Indication: Product used for unknown indication

REACTIONS (4)
  - SARS-CoV-2 test positive [Unknown]
  - Arthritis [Unknown]
  - COVID-19 [Recovered/Resolved]
  - Therapeutic product effect incomplete [Unknown]

NARRATIVE: CASE EVENT DATE: 20221109
